FAERS Safety Report 10241786 (Version 10)
Quarter: 2014Q3

REPORT INFORMATION
  Report Type: Spontaneous
  Country: US (occurrence: None)
  Receive Date: 20140613
  Receipt Date: 20140822
  Transmission Date: 20150326
  Serious: Yes (Life-Threatening, Hospitalization, Other)
  Sender: FDA-Public Use
  Company Number: ADR-2014-01003

PATIENT
  Age: 44 Year
  Sex: Male

DRUGS (1)
  1. LIORESAL [Suspect]
     Active Substance: BACLOFEN
     Indication: MUSCLE SPASTICITY
     Dosage: (SEE B5)

REACTIONS (10)
  - Subdural hygroma [None]
  - Cerebrospinal fluid leakage [None]
  - Post procedural complication [None]
  - Headache [None]
  - Blood creatine phosphokinase increased [None]
  - Subdural haematoma [None]
  - Post lumbar puncture syndrome [None]
  - Fall [None]
  - Dizziness postural [None]
  - Neck pain [None]
